FAERS Safety Report 16704818 (Version 2)
Quarter: 2019Q3

REPORT INFORMATION
  Report Type: Report from Study
  Country: US (occurrence: US)
  Receive Date: 20190814
  Receipt Date: 20190903
  Transmission Date: 20191004
  Serious: Yes (Hospitalization)
  Sender: FDA-Public Use
  Company Number: US-SEATTLE GENETICS-2019SGN02791

PATIENT
  Sex: Female

DRUGS (24)
  1. GABAPENTIN. [Concomitant]
     Active Substance: GABAPENTIN
     Dosage: 1 CAPSULE, QID
     Route: 048
     Dates: start: 20190605
  2. MAGIC MOUTHWASH [Concomitant]
     Active Substance: DIPHENHYDRAMINE HYDROCHLORIDE\LIDOCAINE HYDROCHLORIDE\NYSTATIN
     Dosage: 10 ML, QID
     Route: 048
     Dates: start: 20190404
  3. CYCLOPHOSPHAMIDE. [Suspect]
     Active Substance: CYCLOPHOSPHAMIDE
     Indication: ANAPLASTIC LARGE CELL LYMPHOMA T- AND NULL-CELL TYPES
     Dosage: 750 MG/M2, Q3WEEKS
     Route: 042
     Dates: start: 20180824
  4. DOXORUBICIN [Suspect]
     Active Substance: DOXORUBICIN
     Indication: ANAPLASTIC LARGE CELL LYMPHOMA T- AND NULL-CELL TYPES
     Dosage: 50 MG/M2, Q3WEEKS
     Route: 042
     Dates: start: 20180824
  5. PREDNISONE. [Suspect]
     Active Substance: PREDNISONE
     Indication: ANAPLASTIC LARGE CELL LYMPHOMA T- AND NULL-CELL TYPES
     Dosage: 100 MG, ON DAY 1-5 EVERY 3 WEEKS
     Route: 048
     Dates: start: 20180824
  6. MAGNESIUM OXIDE. [Concomitant]
     Active Substance: MAGNESIUM OXIDE
     Dosage: 2 TAB, BID
     Route: 048
     Dates: start: 20190605
  7. VITAMIN D3 [Concomitant]
     Active Substance: CHOLECALCIFEROL
     Dosage: 1 TAB, QD
     Route: 048
     Dates: start: 20190606
  8. NOVOLOG [Concomitant]
     Active Substance: INSULIN ASPART
     Dosage: UNK
     Route: 058
     Dates: start: 20181213
  9. XULTOPHY 100/3.6 [Concomitant]
     Active Substance: INSULIN DEGLUDEC\LIRAGLUTIDE
     Dosage: 30 UNITS, QD
     Route: 058
     Dates: start: 20190627
  10. OXYCODONE [Concomitant]
     Active Substance: OXYCODONE
     Indication: PAIN
     Dosage: 1 TAB, Q4HR PRN
     Route: 048
     Dates: start: 20190410
  11. SENOKOT-S [Concomitant]
     Active Substance: DOCUSATE SODIUM\SENNOSIDES
     Indication: CONSTIPATION
     Dosage: 2 TAB, BID
     Route: 048
     Dates: start: 20190213, end: 20190627
  12. SODIUM CHLORIDE. [Concomitant]
     Active Substance: SODIUM CHLORIDE
     Dosage: 1 SYRINGE
     Route: 065
     Dates: start: 20190131
  13. VALTREX [Concomitant]
     Active Substance: VALACYCLOVIR HYDROCHLORIDE
     Dosage: 1 TAB, QD
     Route: 048
     Dates: start: 20190603
  14. XYLOCAIN                           /00033401/ [Concomitant]
     Active Substance: LIDOCAINE
     Indication: ORAL PAIN
     Dosage: 10 ML, Q6HR
     Route: 048
     Dates: start: 20190401
  15. ROBAXIN [Concomitant]
     Active Substance: METHOCARBAMOL
     Indication: MUSCLE SPASMS
     Dosage: 1 TAB, Q8HR, PRN
     Route: 048
     Dates: start: 20190410
  16. ETOPOSIDE. [Suspect]
     Active Substance: ETOPOSIDE
     Indication: ANAPLASTIC LARGE CELL LYMPHOMA T- AND NULL-CELL TYPES
     Dosage: 100 MG/M2, ON DAY 1-3 EVERY 21 DAYS
     Route: 042
     Dates: start: 20180824
  17. BRENTUXIMAB VEDOTIN [Suspect]
     Active Substance: BRENTUXIMAB VEDOTIN
     Indication: ANAPLASTIC LARGE CELL LYMPHOMA T- AND NULL-CELL TYPES
     Dosage: 1.2 MG/KG, Q3WEEKS
     Route: 042
     Dates: start: 20190624
  18. COMPAZINE                          /00013302/ [Concomitant]
     Active Substance: PROCHLORPERAZINE EDISYLATE
     Indication: NAUSEA
     Dosage: 1 TAB, Q6HR, PRN
     Route: 048
     Dates: start: 20180928, end: 20190624
  19. COMPAZINE                          /00013302/ [Concomitant]
     Active Substance: PROCHLORPERAZINE EDISYLATE
     Indication: VOMITING
  20. MYFORTIC [Concomitant]
     Active Substance: MYCOPHENOLATE SODIUM
     Dosage: 540 MG, BID
     Route: 048
     Dates: start: 20190221
  21. PROTONIX                           /00661201/ [Concomitant]
     Active Substance: OMEPRAZOLE
     Dosage: 1 TAB, QD
     Route: 048
     Dates: start: 20190405
  22. XARELTO [Concomitant]
     Active Substance: RIVAROXABAN
     Dosage: 20 MG, QD
     Route: 048
     Dates: start: 20190430
  23. SCOPOLAMINE                        /00008701/ [Concomitant]
     Active Substance: SCOPOLAMINE
     Dosage: 1 PATCH, EVERY 72 HOURS
     Route: 062
     Dates: start: 20190118
  24. PROGRAF [Concomitant]
     Active Substance: TACROLIMUS\TACROLIMUS ANHYDROUS
     Dosage: 1 CAPSULE IN MORNING, 2 CAPSULE AT BEDTIME
     Route: 048
     Dates: start: 20190222

REACTIONS (1)
  - Kidney infection [Recovered/Resolved]

NARRATIVE: CASE EVENT DATE: 20190628
